FAERS Safety Report 15658281 (Version 2)
Quarter: 2023Q2

REPORT INFORMATION
  Report Type: Report from Study
  Country: DE (occurrence: DE)
  Receive Date: 20181126
  Receipt Date: 20230517
  Transmission Date: 20230722
  Serious: Yes (Life-Threatening, Hospitalization)
  Sender: FDA-Public Use
  Company Number: DE-PFIZER INC-0013892801PHAMED

PATIENT
  Age: 83 Year
  Sex: Male
  Weight: 70 kg

DRUGS (47)
  1. DALTEPARIN SODIUM [Suspect]
     Active Substance: DALTEPARIN SODIUM
     Indication: Thrombosis prophylaxis
     Dosage: 1 DF, QD
     Route: 058
     Dates: start: 19980225
  2. FENTANYL [Suspect]
     Active Substance: FENTANYL
     Indication: Ill-defined disorder
     Dosage: 1 DF, 1X/DAY
     Route: 042
     Dates: start: 19980226, end: 19980226
  3. FENTANYL [Suspect]
     Active Substance: FENTANYL
     Indication: Anaesthesia
  4. CIPROFLOXACIN HYDROCHLORIDE [Suspect]
     Active Substance: CIPROFLOXACIN HYDROCHLORIDE
     Indication: Ill-defined disorder
     Dosage: 400 MG, 1X/DAY
     Route: 042
     Dates: start: 19980226, end: 19980226
  5. CIPROFLOXACIN HYDROCHLORIDE [Suspect]
     Active Substance: CIPROFLOXACIN HYDROCHLORIDE
     Indication: Infection prophylaxis
  6. NOVALGIN (METAMIZOLE SODIUM) [Suspect]
     Active Substance: METAMIZOLE SODIUM
     Indication: Ill-defined disorder
     Dosage: 40 GTT, 1X/DAY (332)
     Route: 048
     Dates: start: 19980226, end: 19980226
  7. NOVALGIN (METAMIZOLE SODIUM) [Suspect]
     Active Substance: METAMIZOLE SODIUM
     Indication: Pain
  8. BACTRIM [Suspect]
     Active Substance: SULFAMETHOXAZOLE\TRIMETHOPRIM
     Indication: Ill-defined disorder
     Dosage: 1 DF, 1X/DAY (245)
     Route: 048
     Dates: start: 19980226, end: 19980226
  9. BACTRIM [Suspect]
     Active Substance: SULFAMETHOXAZOLE\TRIMETHOPRIM
     Indication: Infection prophylaxis
  10. BACTRIM [Suspect]
     Active Substance: SULFAMETHOXAZOLE\TRIMETHOPRIM
     Indication: Infection prophylaxis
     Route: 048
     Dates: start: 19980226, end: 19980226
  11. TRAMADOL [Suspect]
     Active Substance: TRAMADOL
     Indication: Ill-defined disorder
     Dosage: 100MG,QD
     Route: 048
     Dates: start: 19980209, end: 19980223
  12. TRAMADOL [Suspect]
     Active Substance: TRAMADOL
     Indication: Pain
  13. TRAMADOL [Suspect]
     Active Substance: TRAMADOL
     Indication: Pain
  14. ADALAT [Suspect]
     Active Substance: NIFEDIPINE
     Indication: Ill-defined disorder
     Dosage: 10 MG, 1X/DAY (212)
     Route: 048
     Dates: start: 19980226, end: 19980226
  15. ADALAT [Suspect]
     Active Substance: NIFEDIPINE
     Indication: Hypertension
  16. GLYBURIDE [Suspect]
     Active Substance: GLYBURIDE
     Indication: Ill-defined disorder
     Dosage: 2 DF, 1X/DAY (245)
     Route: 048
     Dates: start: 19980130
  17. GLYBURIDE [Suspect]
     Active Substance: GLYBURIDE
     Indication: Diabetes mellitus
     Route: 048
  18. ASPIRIN [Suspect]
     Active Substance: ASPIRIN
     Indication: Ill-defined disorder
     Dosage: 100 MG, 1X/DAY (245)
     Route: 048
     Dates: start: 19980130, end: 19980223
  19. ASPIRIN [Suspect]
     Active Substance: ASPIRIN
     Indication: Thrombosis prophylaxis
  20. ASPIRIN [Suspect]
     Active Substance: ASPIRIN
     Indication: Thrombosis prophylaxis
     Dosage: 100,QD
     Route: 048
     Dates: end: 19980223
  21. LORMETAZEPAM [Suspect]
     Active Substance: LORMETAZEPAM
     Indication: Ill-defined disorder
     Dosage: 1 DF, 1X/DAY (245)
     Route: 048
     Dates: start: 19980209, end: 19980223
  22. LORMETAZEPAM [Suspect]
     Active Substance: LORMETAZEPAM
     Indication: Sleep disorder
     Dosage: 1 DF, 1X/DAY
     Route: 048
     Dates: end: 19980223
  23. HYDROCHLOROTHIAZIDE\VALSARTAN [Suspect]
     Active Substance: HYDROCHLOROTHIAZIDE\VALSARTAN
     Indication: Ill-defined disorder
     Dosage: 160 MG, 1X/DAY (005)
     Route: 048
     Dates: start: 19980130
  24. HYDROCHLOROTHIAZIDE\VALSARTAN [Suspect]
     Active Substance: HYDROCHLOROTHIAZIDE\VALSARTAN
     Indication: Hypertension
  25. HYDROCHLOROTHIAZIDE\VALSARTAN [Suspect]
     Active Substance: HYDROCHLOROTHIAZIDE\VALSARTAN
     Indication: Hypertension
     Dosage: 160 MG, 1X/DAY
     Route: 048
  26. HYDROCHLOROTHIAZIDE\VALSARTAN [Suspect]
     Active Substance: HYDROCHLOROTHIAZIDE\VALSARTAN
     Indication: Hypertension
     Dosage: 160 MG, 1X/DAY
     Route: 048
  27. DIGOXIN [Concomitant]
     Active Substance: DIGOXIN
     Indication: Hypertension
     Dosage: 0.2 MG, 1X/DAY (245)
     Route: 048
     Dates: start: 19980130
  28. NOVODIGAL (.BETA.-ACETYLDIGOXIN) [Concomitant]
     Active Substance: .BETA.-ACETYLDIGOXIN
     Indication: Hypertension
     Route: 048
  29. FLAVOXATE HYDROCHLORIDE [Concomitant]
     Active Substance: FLAVOXATE HYDROCHLORIDE
     Indication: Prostatic operation
     Dosage: UNK (245)
     Route: 048
     Dates: start: 19980130, end: 19980223
  30. FLAVOXATE HYDROCHLORIDE [Concomitant]
     Active Substance: FLAVOXATE HYDROCHLORIDE
     Route: 048
     Dates: end: 19980223
  31. GINKGO [Concomitant]
     Active Substance: GINKGO
     Indication: Cardiovascular disorder
     Dosage: 1 DF, 1X/DAY (245)
     Route: 048
     Dates: start: 19980130, end: 19980223
  32. GINKGO [Concomitant]
     Active Substance: GINKGO
     Route: 048
     Dates: end: 19980223
  33. GINKGO [Concomitant]
     Active Substance: GINKGO
     Indication: Cardiovascular disorder
     Dosage: 60 GTT, 1X/DAY (332)
     Route: 048
     Dates: start: 19980224
  34. GINKGO [Concomitant]
     Active Substance: GINKGO
     Indication: Cardiovascular disorder
     Route: 048
     Dates: start: 19980224
  35. PSYCHOTONIN SED [Concomitant]
     Indication: Agitation
     Route: 048
     Dates: end: 19980223
  36. HYPERICUM [Concomitant]
     Active Substance: ST. JOHN^S WORT
     Indication: Agitation
     Dosage: 1 DF, UNK (005)
     Route: 048
     Dates: start: 19980130, end: 19980223
  37. VITAMIN C [Concomitant]
     Active Substance: ASCORBIC ACID
     Indication: Vitamin supplementation
     Dosage: 1 DF, 1X/DAY (245)
     Route: 048
     Dates: end: 19980223
  38. VITAMINS NOS [Concomitant]
     Active Substance: VITAMINS
     Indication: Vitamin supplementation
     Dosage: 1 DF, 1X/DAY (245)
     Route: 048
     Dates: end: 19980223
  39. NORVASC [Concomitant]
     Active Substance: AMLODIPINE BESYLATE
     Indication: Hypertension
     Dosage: 10 MG, 1X/DAY
     Route: 048
  40. AMLODIPINE [Concomitant]
     Active Substance: AMLODIPINE BESYLATE
     Indication: Hypertension
     Dosage: 10 MG, 1X/DAY (245)
     Route: 048
     Dates: start: 19980130
  41. UNSPECIFIED INGREDIENT [Concomitant]
     Active Substance: UNSPECIFIED INGREDIENT
     Indication: Electrolyte imbalance
     Route: 042
     Dates: start: 19980226, end: 19980226
  42. DEXAMETHASONE [Concomitant]
     Active Substance: DEXAMETHASONE
     Indication: Cataract operation
     Dosage: 5 GTT, 1X/DAY (332)
     Route: 047
  43. METAMIZOLE SODIUM [Concomitant]
     Active Substance: METAMIZOLE SODIUM
     Dosage: UNK
     Dates: start: 19980226, end: 19980226
  44. OMEPRAZOLE [Concomitant]
     Active Substance: OMEPRAZOLE
     Indication: Prophylaxis
     Dosage: (005)
     Route: 048
     Dates: start: 19980130, end: 19980223
  45. AGIOLAX [MATRICARIA RECUTITA;PLANTAGO AFRA SEED;SENNA ALEXANDRINA FRUI [Concomitant]
     Indication: Constipation
     Dosage: UNK (099)
     Route: 048
     Dates: start: 19980130, end: 19980223
  46. MATRICARIA RECUTITA [Concomitant]
     Active Substance: MATRICARIA RECUTITA
     Indication: Constipation
     Route: 048
     Dates: end: 19980223
  47. ELECTROLYTES NOS/XYLITOL [Concomitant]
     Indication: Electrolyte imbalance
     Dosage: 1000 ML, 1X/DAY (1 LITRE DAILY)
     Dates: start: 19980226, end: 19980226

REACTIONS (13)
  - Ocular hyperaemia [Recovering/Resolving]
  - Cheilitis [Recovered/Resolved]
  - Toxic epidermal necrolysis [Recovering/Resolving]
  - Erythema [Recovered/Resolved]
  - Pyrexia [Recovered/Resolved]
  - Pruritus [Recovered/Resolved]
  - Urinary hesitation [Recovered/Resolved]
  - Mucosal inflammation [Recovered/Resolved]
  - Skin lesion [Recovering/Resolving]
  - Toxic epidermal necrolysis [Recovering/Resolving]
  - Lip erosion [Recovering/Resolving]
  - Pruritus [Recovering/Resolving]
  - Pyrexia [Recovering/Resolving]

NARRATIVE: CASE EVENT DATE: 19980227
